FAERS Safety Report 8762314 (Version 3)
Quarter: 2013Q4

REPORT INFORMATION
  Report Type: Report from Study
  Country: JP (occurrence: JP)
  Receive Date: 20120830
  Receipt Date: 20131031
  Transmission Date: 20140711
  Serious: Yes (Other)
  Sender: FDA-Public Use
  Company Number: JP-VERTEX PHARMACEUTICAL INC.-AE-2012-010735

PATIENT
  Age: 52 Year
  Sex: Female

DRUGS (8)
  1. VX-950 (TELAPREVIR) [Suspect]
     Indication: CHRONIC HEPATITIS C
     Dosage: 1500 MG, QD
     Route: 048
     Dates: start: 20120511, end: 20120731
  2. RIBAVIRIN [Suspect]
     Indication: CHRONIC HEPATITIS C
     Dosage: 400 MG, QD
     Route: 048
     Dates: start: 20120511, end: 20120531
  3. RIBAVIRIN [Suspect]
     Dosage: 200 MG, QD
     Route: 048
     Dates: start: 20120601
  4. PEGINTRON [Suspect]
     Indication: CHRONIC HEPATITIS C
     Dosage: 1.5 ?G/KG, WEEKLY
     Route: 058
     Dates: start: 20120511, end: 20120525
  5. PEGINTRON [Suspect]
     Dosage: 40 ?G, WEEKLY
     Route: 058
     Dates: start: 20120601, end: 20120626
  6. PEGINTRON [Suspect]
     Dosage: 20 ?G, WEEKLY
     Route: 058
     Dates: start: 20120627, end: 20120710
  7. PEGINTRON [Suspect]
     Dosage: 10 ?G, WEEKLY
     Route: 058
     Dates: start: 20120711
  8. LIVALO [Concomitant]
     Dosage: 2 MG, QD
     Route: 048

REACTIONS (3)
  - Neutrophil count decreased [Recovered/Resolved]
  - White blood cell count decreased [Recovered/Resolved]
  - Neutrophil count decreased [Recovered/Resolved]
